FAERS Safety Report 23948891 (Version 1)
Quarter: 2024Q2

REPORT INFORMATION
  Report Type: Other
  Country: US (occurrence: None)
  Receive Date: 20240607
  Receipt Date: 20240607
  Transmission Date: 20240716
  Serious: Yes (Other)
  Sender: FDA-Public Use
  Company Number: US-ROCHE-3086582

PATIENT
  Age: 75 Year
  Sex: Female
  Weight: 57.658 kg

DRUGS (2)
  1. OCREVUS [Suspect]
     Active Substance: OCRELIZUMAB
     Indication: Relapsing multiple sclerosis
     Dosage: 300 MG AT DAY 0 AND 14, DATE OF TREATMENT: 09/DEC/2019, 09/JUN/2020, 09/DEC/2020,09/JUN/2021, 10/DEC
     Route: 042
  2. AUBAGIO [Concomitant]
     Active Substance: TERIFLUNOMIDE

REACTIONS (6)
  - Blindness [Unknown]
  - Shoulder fracture [Unknown]
  - Rheumatoid arthritis [Not Recovered/Not Resolved]
  - Immunodeficiency [Unknown]
  - Hypertension [Unknown]
  - Psoriasis [Unknown]
